FAERS Safety Report 17140863 (Version 1)
Quarter: 2019Q4

REPORT INFORMATION
  Report Type: Spontaneous
  Country: US (occurrence: US)
  Receive Date: 20191211
  Receipt Date: 20191211
  Transmission Date: 20200122
  Serious: Yes (Hospitalization)
  Sender: FDA-Public Use
  Company Number: US-SLATE RUN PHARMACEUTICALS-SLTR-AE-19-117

PATIENT
  Age: 15 Year
  Sex: Female
  Weight: 67 kg

DRUGS (1)
  1. BUPROPION HYDROCHLORIDE ER TABLET USP [Suspect]
     Active Substance: BUPROPION HYDROCHLORIDE
     Indication: DEPRESSION
     Dosage: APPROXIMATELY 11 TABLETS (1,650 MG TOTAL).
     Route: 048

REACTIONS (9)
  - Sinus tachycardia [Unknown]
  - Vomiting [Unknown]
  - Liver function test abnormal [Unknown]
  - Generalised tonic-clonic seizure [Recovered/Resolved]
  - Intentional overdose [Recovered/Resolved]
  - Depressed level of consciousness [Recovered/Resolved]
  - Acidosis [Unknown]
  - Myoclonus [Recovered/Resolved]
  - Electrocardiogram QRS complex prolonged [Unknown]
